FAERS Safety Report 6260758-6 (Version None)
Quarter: 2009Q3

REPORT INFORMATION
  Report Type: 
  Country: None (occurrence: None)
  Receive Date: 20090706
  Receipt Date: 20090619
  Transmission Date: 20100115
  Serious: Yes (Hospitalization)
  Sender: FDA-Public Use
  Company Number: 2008AL011326

PATIENT
  Age: 72 Year
  Sex: Female

DRUGS (14)
  1. DIGOXIN [Suspect]
     Indication: CARDIAC OPERATION
     Dosage: 0.25MG, DAILY, PO
     Route: 048
  2. AMLODIPINE [Concomitant]
  3. ZOCOR [Concomitant]
  4. CYMBALTA [Concomitant]
  5. METANX [Concomitant]
  6. CELEBREX [Concomitant]
  7. FERROUS SULFATE TAB [Concomitant]
  8. CYANOCOBALAMIN [Concomitant]
  9. DETROL [Concomitant]
  10. MEGACE [Concomitant]
  11. COLACE [Concomitant]
  12. ARICEPT [Concomitant]
  13. ASPIRIN [Concomitant]
  14. RANITIDINE [Concomitant]

REACTIONS (16)
  - ANHEDONIA [None]
  - ANXIETY [None]
  - CONFUSIONAL STATE [None]
  - DECREASED APPETITE [None]
  - DIZZINESS [None]
  - ECONOMIC PROBLEM [None]
  - FATIGUE [None]
  - INJURY [None]
  - IRRITABILITY [None]
  - LOSS OF CONSCIOUSNESS [None]
  - MEMORY IMPAIRMENT [None]
  - NAUSEA [None]
  - PAIN [None]
  - SYNCOPE [None]
  - THERAPEUTIC AGENT TOXICITY [None]
  - VOMITING [None]
